FAERS Safety Report 17056310 (Version 2)
Quarter: 2020Q1

REPORT INFORMATION
  Report Type: Report from Study
  Country: US (occurrence: US)
  Receive Date: 20191121
  Receipt Date: 20200107
  Transmission Date: 20200409
  Serious: Yes (Hospitalization, Other)
  Sender: FDA-Public Use
  Company Number: US-ROCHE-2354487

PATIENT
  Age: 39 Year
  Sex: Female
  Weight: 92.16 kg

DRUGS (9)
  1. BACLOFEN. [Concomitant]
     Active Substance: BACLOFEN
     Indication: MUSCLE SPASMS
     Dosage: ONGOING YES, 5 MG IN MORNING AND 15 MG IN EVENING
     Route: 048
     Dates: start: 201906
  2. ESTRADIOL. [Concomitant]
     Active Substance: ESTRADIOL
     Indication: HYSTERECTOMY
     Route: 048
     Dates: start: 201901
  3. ESTRADIOL. [Concomitant]
     Active Substance: ESTRADIOL
     Indication: HYSTERECTOMY
     Route: 048
     Dates: start: 201901
  4. GABAPENTIN. [Concomitant]
     Active Substance: GABAPENTIN
     Indication: NEURALGIA
     Dosage: 300 MG IN MORNING AND 600 MG IN EVENING
     Route: 048
  5. VITAMIN B12 [VITAMIN B12 NOS] [Concomitant]
     Active Substance: CYANOCOBALAMIN
     Route: 048
  6. ESTROGEN [Concomitant]
     Active Substance: ESTROGENS
     Indication: HYSTERECTOMY
     Route: 048
     Dates: start: 201902
  7. OCREVUS [Suspect]
     Active Substance: OCRELIZUMAB
     Indication: RELAPSING-REMITTING MULTIPLE SCLEROSIS
     Route: 042
     Dates: start: 20180614
  8. VITAMIN D3 [Concomitant]
     Active Substance: CHOLECALCIFEROL
     Route: 048
  9. OCREVUS [Suspect]
     Active Substance: OCRELIZUMAB
     Dosage: TREATMENT DATES: 21/JUN/2019 AND 21/DEC/2019
     Route: 042
     Dates: start: 201812

REACTIONS (7)
  - Headache [Recovered/Resolved]
  - Heart rate increased [Recovered/Resolved]
  - Pruritus [Recovered/Resolved]
  - Throat irritation [Recovered/Resolved]
  - Feeling abnormal [Not Recovered/Not Resolved]
  - Chest pain [Recovered/Resolved]
  - Blood pressure increased [Unknown]

NARRATIVE: CASE EVENT DATE: 201906
